FAERS Safety Report 4785875-9 (Version None)
Quarter: 2005Q3

REPORT INFORMATION
  Report Type: 
  Country: None (occurrence: None)
  Receive Date: 20050930
  Receipt Date: 20050207
  Transmission Date: 20060218
  Serious: Yes (Hospitalization)
  Sender: FDA-Public Use
  Company Number: 2005FR-00299

PATIENT
  Age: 59 Year
  Sex: Male

DRUGS (4)
  1. HELICLEAR         (CLARITHROMYCIN, AMOXICILLIN, LANSOPRAZOLE) [Suspect]
     Indication: HELICOBACTER INFECTION
     Dosage: 500 MG BD ORAL
     Route: 048
     Dates: start: 20020222
  2. DICLOFENAC [Concomitant]
  3. LANSOPRAZOLE [Concomitant]
  4. AMOXICILLIN [Concomitant]

REACTIONS (4)
  - CHOLESTASIS [None]
  - JAUNDICE [None]
  - LIVER FUNCTION TEST ABNORMAL [None]
  - MALAISE [None]
